FAERS Safety Report 13266701 (Version 1)
Quarter: 2017Q1

REPORT INFORMATION
  Report Type: Spontaneous
  Country: CA (occurrence: CA)
  Receive Date: 20170224
  Receipt Date: 20170224
  Transmission Date: 20170428
  Serious: Yes (Hospitalization)
  Sender: FDA-Public Use
  Company Number: PHHY2017CA024080

PATIENT
  Sex: Female

DRUGS (3)
  1. OCTREOTIDE. [Suspect]
     Active Substance: OCTREOTIDE
     Indication: CARCINOID SYNDROME
     Dosage: UNK, EVERY 2 WEEKS
     Route: 058
  2. SOMATULINE [Suspect]
     Active Substance: LANREOTIDE ACETATE
     Indication: CARCINOID SYNDROME
     Dosage: 120 MG, UNK (1 EVERY 2 WEEKS)
     Route: 058
  3. SANDOSTATIN LAR DEPOT [Suspect]
     Active Substance: OCTREOTIDE ACETATE
     Indication: CARCINOID SYNDROME
     Dosage: 60 MG, UNK (1 EVERY 2 WEEKS)
     Route: 030

REACTIONS (5)
  - Dehydration [Unknown]
  - Inappropriate schedule of drug administration [Unknown]
  - Intestinal obstruction [Unknown]
  - Calcification of muscle [Unknown]
  - Diarrhoea [Unknown]
